FAERS Safety Report 4627093-0 (Version None)
Quarter: 2005Q2

REPORT INFORMATION
  Report Type: 
  Country: None (occurrence: None)
  Receive Date: 20050401
  Receipt Date: 20050401
  Transmission Date: 20051028
  Serious: Yes (Hospitalization)
  Sender: FDA-Public Use
  Company Number: None

PATIENT
  Sex: Male
  Weight: 76.9301 kg

DRUGS (18)
  1. GEMCITABINE 100MG/ML + 50MG/ML LILLY + B. MYERS [Suspect]
     Indication: PANCREATIC CARCINOMA
     Dosage: 1000MG^M2/2 DAY 1 + 15 INTRAVENOUS
     Route: 042
     Dates: start: 20050216, end: 20050323
  2. CISPLATIN [Suspect]
     Indication: PANCREATIC CARCINOMA
     Dosage: 1000MG^M2/2 DAY 1 + 15 INTRAVENOUS
     Route: 042
     Dates: start: 20050216, end: 20050323
  3. BEVICUZUMAB 25MG/ML GENENTECH [Suspect]
     Indication: PANCREATIC CARCINOMA
     Dosage: 10 MG/KG DAY 1 AND 15 IV
     Route: 042
     Dates: start: 20050216, end: 20050323
  4. DYNACIRC [Concomitant]
  5. ATENOLOL [Concomitant]
  6. ACIPHEX [Concomitant]
  7. GLYCOLAX [Concomitant]
  8. OXYCODONE HCL [Concomitant]
  9. PROCHLORPERAZINE [Concomitant]
  10. ZOFRAN [Concomitant]
  11. LORAZEPAM [Concomitant]
  12. SENNA [Concomitant]
  13. TRAZADONE [Concomitant]
  14. ALOXI [Concomitant]
  15. DECADRON [Concomitant]
  16. DURAGESIC-100 [Concomitant]
  17. ARANESP [Concomitant]
  18. LOVENOX [Concomitant]

REACTIONS (2)
  - GASTRIC ULCER HAEMORRHAGE [None]
  - LOSS OF CONSCIOUSNESS [None]
